FAERS Safety Report 10592096 (Version 2)
Quarter: 2014Q4

REPORT INFORMATION
  Report Type: Spontaneous
  Country: NL (occurrence: NL)
  Receive Date: 20141119
  Receipt Date: 20141208
  Transmission Date: 20150529
  Serious: Yes (Hospitalization)
  Sender: FDA-Public Use
  Company Number: NL-ACTELION-A-CH2014-107699

PATIENT
  Age: 66 Year
  Sex: Female

DRUGS (1)
  1. VELETRI [Suspect]
     Active Substance: EPOPROSTENOL
     Indication: PRODUCT USED FOR UNKNOWN INDICATION
     Dosage: UNK
     Route: 042
     Dates: start: 20140919

REACTIONS (6)
  - Oedema [Unknown]
  - Transfusion [Unknown]
  - Condition aggravated [Unknown]
  - Gastric haemorrhage [Unknown]
  - Fall [Unknown]
  - Haemoglobin decreased [Unknown]
